FAERS Safety Report 9262987 (Version 1)
Quarter: 2013Q2

REPORT INFORMATION
  Report Type: Spontaneous
  Country: IE (occurrence: IE)
  Receive Date: 20130430
  Receipt Date: 20130430
  Transmission Date: 20140414
  Serious: Yes (Other)
  Sender: FDA-Public Use
  Company Number: IE-BAYER-2013-025023

PATIENT
  Age: 75 Year
  Sex: Female

DRUGS (2)
  1. CIPROXIN [Suspect]
     Indication: COUGH
     Dosage: 500 MG, BID
     Route: 048
     Dates: start: 20130111, end: 20130111
  2. CIPROXIN [Suspect]
     Indication: ASTHMA

REACTIONS (11)
  - Delirium [Recovered/Resolved]
  - Hypersensitivity [Recovered/Resolved]
  - Rash pruritic [Recovering/Resolving]
  - Nausea [Recovered/Resolved]
  - Retching [Recovered/Resolved]
  - Arthralgia [Recovered/Resolved]
  - Pain in jaw [Recovered/Resolved]
  - Dyspnoea [Recovered/Resolved]
  - Asthenia [Recovered/Resolved]
  - Decreased appetite [Recovered/Resolved]
  - Asthenia [Recovered/Resolved]
